FAERS Safety Report 26208979 (Version 1)
Quarter: 2025Q4

REPORT INFORMATION
  Report Type: Spontaneous
  Country: US (occurrence: None)
  Receive Date: 20251227
  Receipt Date: 20251227
  Transmission Date: 20260119
  Serious: Yes (Hospitalization)
  Sender: FDA-CTU
  Company Number: None

PATIENT
  Age: 45 Year
  Sex: Female
  Weight: 115.3 kg

DRUGS (2)
  1. XELODA [Suspect]
     Active Substance: CAPECITABINE
     Dates: end: 20251221
  2. ELOXATIN [Suspect]
     Active Substance: OXALIPLATIN
     Dates: end: 20251210

REACTIONS (4)
  - Pleuritic pain [None]
  - Dyspnoea [None]
  - Pulmonary embolism [None]
  - Chest pain [None]

NARRATIVE: CASE EVENT DATE: 20251221
